FAERS Safety Report 21507390 (Version 5)
Quarter: 2024Q4

REPORT INFORMATION
  Report Type: Spontaneous
  Country: PT (occurrence: PT)
  Receive Date: 20221026
  Receipt Date: 20241028
  Transmission Date: 20250115
  Serious: Yes (Other)
  Sender: MERCK
  Company Number: PT-009507513-2210PRT008905

PATIENT
  Age: 74 Year
  Sex: Female

DRUGS (3)
  1. CUBICIN [Suspect]
     Active Substance: DAPTOMYCIN
     Indication: Endocarditis
     Dosage: UNK
  2. MEROPENEM [Concomitant]
     Active Substance: MEROPENEM
     Dosage: UNK
  3. LINEZOLID [Concomitant]
     Active Substance: LINEZOLID
     Dosage: UNK

REACTIONS (2)
  - Nephrogenic diabetes insipidus [Unknown]
  - Toxicity to various agents [Unknown]
